FAERS Safety Report 5740461-9 (Version None)
Quarter: 2008Q2

REPORT INFORMATION
  Report Type: 
  Country: None (occurrence: None)
  Receive Date: 20080516
  Receipt Date: 20080506
  Transmission Date: 20081010
  Serious: Yes (Other)
  Sender: FDA-Public Use
  Company Number: GB-WYE-G01504108

PATIENT
  Age: 49 Year
  Sex: Male

DRUGS (1)
  1. EFFEXOR [Suspect]
     Dosage: 150MG DAILY
     Route: 048
     Dates: start: 20080101

REACTIONS (5)
  - CHILLBLAINS [None]
  - OEDEMA PERIPHERAL [None]
  - PETECHIAE [None]
  - RASH ERYTHEMATOUS [None]
  - VASCULAR SKIN DISORDER [None]
